FAERS Safety Report 7291395-2 (Version None)
Quarter: 2011Q1

REPORT INFORMATION
  Report Type: 
  Country: None (occurrence: None)
  Receive Date: 20110214
  Receipt Date: 20110204
  Transmission Date: 20110831
  Serious: Yes (Death, Life-Threatening)
  Sender: FDA-Public Use
  Company Number: B0698429A

PATIENT
  Sex: Female
  Weight: 54 kg

DRUGS (16)
  1. FLUDARA [Suspect]
     Indication: STEM CELL TRANSPLANT
     Dosage: 30MGM2 PER DAY
     Route: 042
     Dates: start: 20100617, end: 20100621
  2. VORICONAZOLE [Concomitant]
     Dosage: 600MG PER DAY
     Route: 048
     Dates: start: 20100622, end: 20100717
  3. CYCLOPHOSPHAMIDE [Suspect]
     Indication: IMMUNOSUPPRESSION
     Dosage: 160MG PER DAY
     Route: 065
     Dates: start: 20100622, end: 20100720
  4. METHYLPREDNISOLONE [Concomitant]
     Indication: IMMUNOSUPPRESSION
     Dosage: 50MG PER DAY
     Route: 065
     Dates: start: 20100710, end: 20100721
  5. TEICOPLANIN [Concomitant]
     Dosage: 400MG PER DAY
     Route: 042
     Dates: start: 20100627, end: 20100704
  6. UNKNOWN DRUG [Concomitant]
     Dosage: 190000IUAX PER DAY
     Route: 042
     Dates: start: 20100719, end: 20100721
  7. VANCOMYCIN HYDROCHLORIDE [Concomitant]
     Dosage: 2G PER DAY
     Route: 048
     Dates: start: 20100710, end: 20100717
  8. ACICLOVIR [Concomitant]
     Dosage: 1000MG PER DAY
     Route: 048
     Dates: start: 20100621, end: 20100714
  9. NOREPINEPHRINE BITARTRATE [Concomitant]
     Dosage: .05G PER DAY
     Dates: start: 20100720, end: 20100721
  10. GRAN [Concomitant]
     Dates: start: 20100630, end: 20100709
  11. ALKERAN [Suspect]
     Indication: STEM CELL TRANSPLANT
     Dosage: 140MGM2 PER DAY
     Route: 042
     Dates: start: 20100621, end: 20100621
  12. MEROPENEM [Concomitant]
     Dosage: 2G PER DAY
     Route: 042
     Dates: start: 20100621, end: 20100629
  13. DORIPENEM [Concomitant]
     Dosage: 1G PER DAY
     Dates: start: 20100630, end: 20100710
  14. CIPROFLOXACIN [Concomitant]
     Dosage: 400MG PER DAY
     Route: 042
     Dates: start: 20100711, end: 20100727
  15. ANTIFUNGAL [Concomitant]
     Dosage: 150MG PER DAY
     Route: 042
     Dates: start: 20100717, end: 20100721
  16. BAKTAR [Concomitant]
     Dosage: 1IUAX PER DAY
     Route: 048
     Dates: start: 20100713, end: 20100718

REACTIONS (3)
  - RENAL FAILURE [None]
  - JAUNDICE [None]
  - CARDIAC FAILURE [None]
